FAERS Safety Report 9397920 (Version 2)
Quarter: 2013Q4

REPORT INFORMATION
  Report Type: Spontaneous
  Country: GB (occurrence: None)
  Receive Date: 20130709
  Receipt Date: 20131112
  Transmission Date: 20140711
  Serious: Yes (Other)
  Sender: FDA-Public Use
  Company Number: GB-MACLEODS PHARMA-000108

PATIENT
  Age: 86 Year
  Sex: Male
  Weight: 83 kg

DRUGS (8)
  1. DONEPEZIL [Suspect]
     Indication: DEMENTIA
     Route: 048
     Dates: start: 20130603, end: 20130608
  2. DOSULEPIN (DOSULEPIN) [Concomitant]
  3. SIMVASTATIN (SIMVASTATIN) [Concomitant]
  4. NAPROSYN (NAPROSYN) [Concomitant]
  5. THYROXINE (THYROXINE) [Concomitant]
  6. MST CONTINUS (MST CONTINUS) [Concomitant]
  7. ASPIRIN (ASPIRIN) [Concomitant]
  8. SODIUM VALPROATE (SODIUM VALPROATE) [Concomitant]

REACTIONS (2)
  - Nightmare [None]
  - Hallucination [None]
